FAERS Safety Report 15641110 (Version 5)
Quarter: 2021Q2

REPORT INFORMATION
  Report Type: Spontaneous
  Country: US (occurrence: US)
  Receive Date: 20181120
  Receipt Date: 20210524
  Transmission Date: 20210716
  Serious: Yes (Hospitalization, Other)
  Sender: FDA-Public Use
  Company Number: US-PFIZER INC-2018472234

PATIENT
  Age: 78 Year
  Sex: Female
  Weight: 122 kg

DRUGS (1)
  1. XELJANZ [Suspect]
     Active Substance: TOFACITINIB CITRATE
     Indication: RHEUMATOID ARTHRITIS
     Dosage: 5 MG, 2X/DAY

REACTIONS (8)
  - Transient ischaemic attack [Unknown]
  - Functional gastrointestinal disorder [Unknown]
  - Cerebrovascular accident [Unknown]
  - Dysgraphia [Unknown]
  - Upper limb fracture [Unknown]
  - Pneumonia [Unknown]
  - Memory impairment [Unknown]
  - Fall [Unknown]

NARRATIVE: CASE EVENT DATE: 201810
